FAERS Safety Report 13638391 (Version 1)
Quarter: 2017Q2

REPORT INFORMATION
  Report Type: Spontaneous
  Country: US (occurrence: US)
  Receive Date: 20170609
  Receipt Date: 20170609
  Transmission Date: 20170830
  Serious: No
  Sender: FDA-Public Use
  Company Number: US-BAYER-2017-109957

PATIENT
  Sex: Male

DRUGS (1)
  1. XOFIGO [Suspect]
     Active Substance: RADIUM RA-223 DICHLORIDE
     Indication: PROSTATE CANCER METASTATIC
     Dosage: DAILY DOSE 1.49 MCI/KG; 6 INJECTIONS EVERY 4 WEEKS
     Route: 042

REACTIONS (3)
  - Rash vesicular [None]
  - Urinary incontinence [None]
  - Genital rash [None]
